FAERS Safety Report 7756271-7 (Version None)
Quarter: 2011Q3

REPORT INFORMATION
  Report Type: 
  Country: None (occurrence: None)
  Receive Date: 20110916
  Receipt Date: 20110907
  Transmission Date: 20111222
  Serious: Yes (Death, Hospitalization, Disabling, Other)
  Sender: FDA-Public Use
  Company Number: US-CELGENEUS-163-21880-11072612

PATIENT
  Sex: Female

DRUGS (12)
  1. HYDROCODONE BITARTRATE AND ACETAMINOPHEN [Concomitant]
     Route: 065
  2. PRILOSEC [Concomitant]
     Route: 065
  3. NORCO [Concomitant]
     Indication: PAIN
     Route: 065
  4. LUMIGAN [Concomitant]
     Route: 065
  5. SENNA [Concomitant]
     Indication: CONSTIPATION
     Route: 065
  6. FENTANYL [Concomitant]
     Indication: PAIN
     Route: 065
  7. XANAX [Concomitant]
     Indication: ANXIETY
     Route: 065
  8. ASPIRIN [Concomitant]
     Route: 065
  9. COMPAZINE [Concomitant]
     Indication: NAUSEA
     Route: 065
  10. MULTI-VITAMINS [Concomitant]
     Route: 065
  11. REVLIMID [Suspect]
     Dosage: 25 MILLIGRAM
     Route: 048
     Dates: start: 20110621, end: 20110711
  12. DEXAMETHASONE [Concomitant]
     Route: 065

REACTIONS (2)
  - PANCYTOPENIA [None]
  - MULTIPLE MYELOMA [None]
